FAERS Safety Report 23874131 (Version 1)
Quarter: 2024Q2

REPORT INFORMATION
  Report Type: Spontaneous
  Country: DE (occurrence: DE)
  Receive Date: 20240520
  Receipt Date: 20240520
  Transmission Date: 20240715
  Serious: Yes (Other)
  Sender: FDA-Public Use
  Company Number: DE-ANIPHARMA-2024-DE-000063

PATIENT
  Age: 71 Year
  Sex: Female

DRUGS (5)
  1. CANDESARTAN CILEXETIL [Suspect]
     Active Substance: CANDESARTAN CILEXETIL
     Indication: Product used for unknown indication
     Dosage: 16 MILLIGRAM
     Route: 048
  2. METOPROLOL [Suspect]
     Active Substance: METOPROLOL
     Dosage: 47.5 MILLIGRAM
     Route: 048
  3. MIRTAZAPINE [Suspect]
     Active Substance: MIRTAZAPINE
     Dosage: 15 MILLIGRAM / DOSE TEXT: 7.5 MILLIGRAM
     Route: 048
  4. LORAZEPAM [Suspect]
     Active Substance: LORAZEPAM
     Dosage: 3 MILLIGRAM / DOSE TEXT: 2.5 MILLIGRAM / DOSE TEXT: 2 MILLIGRAM
     Route: 048
  5. RISPERIDONE [Suspect]
     Active Substance: RISPERIDONE
     Dosage: 0.75 MILLIGRAM / DOSE TEXT: 1 MILLIGRAM / DOSE TEXT: 0.5 MILLIGRAM
     Route: 048
     Dates: start: 20240202

REACTIONS (1)
  - Electrocardiogram QT prolonged [Unknown]
